FAERS Safety Report 10208589 (Version 16)
Quarter: 2016Q3

REPORT INFORMATION
  Report Type: Report from Study
  Country: AT (occurrence: AT)
  Receive Date: 20140530
  Receipt Date: 20160810
  Transmission Date: 20161109
  Serious: Yes (Hospitalization, Other)
  Sender: FDA-Public Use
  Company Number: AT-INCYTE CORPORATION-2014IN001453

PATIENT
  Age: 62 Year
  Sex: Male
  Weight: 66 kg

DRUGS (61)
  1. EXFORGE [Concomitant]
     Active Substance: AMLODIPINE BESYLATE\VALSARTAN
     Dosage: 1 DF, QD (5/160 MG)
     Route: 065
  2. CONCOR [Concomitant]
     Active Substance: BISOPROLOL FUMARATE
     Dosage: 5 MG, QD IN THE MORNING
  3. EUTHYROX [Concomitant]
     Active Substance: LEVOTHYROXINE SODIUM
     Dosage: 125 UG, QD IN THE MORNING
  4. FURON [Concomitant]
     Active Substance: FUROSEMIDE
     Dosage: 40 MG, QD IN THE MORNING
  5. FURON [Concomitant]
     Active Substance: FUROSEMIDE
     Dosage: 40 MG, QD IN THE MORNING
  6. PANTOPRAZOL ALTAN [Concomitant]
     Dosage: 40 MG, QD IN THE MORNING
  7. PANTOPRAZOL ALTAN [Concomitant]
     Dosage: 40 MG, QD IN THE MORNING
  8. PANTOPRAZOL ALTAN [Concomitant]
     Dosage: 40 MG, QD IN THE MORNING
  9. EPOETIN THETA [Concomitant]
     Active Substance: ERYTHROPOIETIN
     Dosage: 1 ML, QW IN THE MORNING
  10. EUTHYROX [Concomitant]
     Active Substance: LEVOTHYROXINE SODIUM
     Indication: PRODUCT USED FOR UNKNOWN INDICATION
     Dosage: UNKNOWN
     Route: 065
  11. FURON [Concomitant]
     Active Substance: FUROSEMIDE
     Indication: PRODUCT USED FOR UNKNOWN INDICATION
     Dosage: UNKNOWN
     Route: 065
  12. FURON [Concomitant]
     Active Substance: FUROSEMIDE
     Dosage: 40 MG, QD IN THE MORNING
  13. UROSIN [Concomitant]
     Active Substance: ALLOPURINOL
     Dosage: 300 MG, QD AT NOONTIME
  14. OLEOVIT D3 [Concomitant]
     Active Substance: CHOLECALCIFEROL
     Dosage: 30 DRP, QW ON FRIDAYS
  15. OLEOVIT D3 [Concomitant]
     Active Substance: CHOLECALCIFEROL
     Dosage: 30 DRP, QW ON FRIDAYS
  16. EPOETIN THETA [Concomitant]
     Active Substance: ERYTHROPOIETIN
     Dosage: 1 ML, QW IN THE MORNING
  17. AQUAPHORIL [Concomitant]
     Dosage: 1 DF, QD IN THE MORNING
  18. PANTOPRAZOL ALTAN [Concomitant]
     Indication: PRODUCT USED FOR UNKNOWN INDICATION
     Dosage: UNKNOWN
     Route: 065
  19. PANTOPRAZOL ALTAN [Concomitant]
     Dosage: 40 MG, QD IN THE MORNING
  20. UROSIN [Concomitant]
     Active Substance: ALLOPURINOL
     Dosage: 300 MG, QD AT NOONTIME
  21. UROSIN [Concomitant]
     Active Substance: ALLOPURINOL
     Dosage: 300 MG, QD AT NOONTIME
  22. NOVALGIN [Concomitant]
     Active Substance: METAMIZOLE SODIUM
     Dosage: UNK
     Route: 065
  23. OLEOVIT D3 [Concomitant]
     Active Substance: CHOLECALCIFEROL
     Indication: PRODUCT USED FOR UNKNOWN INDICATION
     Dosage: UNKNOWN
     Route: 065
  24. OLEOVIT D3 [Concomitant]
     Active Substance: CHOLECALCIFEROL
     Dosage: 30 DRP, QW ON FRIDAYS
     Route: 065
  25. JAKAFI [Suspect]
     Active Substance: RUXOLITINIB
     Indication: MYELOFIBROSIS
     Dosage: 5 MG, BID, 1 IN THE MORNING, 1 IN THE EVENING
     Route: 048
     Dates: start: 20120307
  26. EXFORGE [Concomitant]
     Active Substance: AMLODIPINE BESYLATE\VALSARTAN
     Dosage: 1 DF, QD (5/160 MG)
     Route: 065
  27. EXFORGE [Concomitant]
     Active Substance: AMLODIPINE BESYLATE\VALSARTAN
     Dosage: 1 DF, QD (5/160 MG)
     Route: 065
  28. EUTHYROX [Concomitant]
     Active Substance: LEVOTHYROXINE SODIUM
     Dosage: 125 UG, QD IN THE MORNING
  29. FURON [Concomitant]
     Active Substance: FUROSEMIDE
     Dosage: 40 MG, QD IN THE MORNING
  30. AQUAPHORIL [Concomitant]
     Dosage: 1 DF, QD IN THE MORNING
  31. AQUAPHORIL [Concomitant]
     Dosage: 1 DF, QD IN THE MORNING
  32. AQUAPHORIL [Concomitant]
     Dosage: 1 DF, QD IN THE MORNING
  33. PANTOPRAZOL ALTAN [Concomitant]
     Dosage: 40 MG, QD IN THE MORNING
  34. DREISACARB [Concomitant]
     Active Substance: CALCIUM CARBONATE
     Indication: PRODUCT USED FOR UNKNOWN INDICATION
     Dosage: 4 DF, QD 2 IN THE MORNING, 2 IN THE EVENING
     Route: 065
  35. EPOETIN THETA [Concomitant]
     Active Substance: ERYTHROPOIETIN
     Dosage: 1 ML, QW IN THE MORNING
  36. EXFORGE [Concomitant]
     Active Substance: AMLODIPINE BESYLATE\VALSARTAN
     Indication: PRODUCT USED FOR UNKNOWN INDICATION
     Dosage: UNKNOWN
     Route: 065
  37. FURON [Concomitant]
     Active Substance: FUROSEMIDE
     Dosage: 40 MG, QD IN THE MORNING
  38. AQUAPHORIL [Concomitant]
     Indication: PRODUCT USED FOR UNKNOWN INDICATION
     Dosage: UNKNOWN
     Route: 065
  39. AQUAPHORIL [Concomitant]
     Dosage: 1 DF, QD IN THE MORNING
  40. UROSIN [Concomitant]
     Active Substance: ALLOPURINOL
     Dosage: 300 MG, QD AT NOONTIME
  41. DREISACARB [Concomitant]
     Active Substance: CALCIUM CARBONATE
     Dosage: UNK
  42. EPOETIN THETA [Concomitant]
     Active Substance: ERYTHROPOIETIN
     Dosage: 1 ML, QW IN THE MORNING
  43. CONCOR [Concomitant]
     Active Substance: BISOPROLOL FUMARATE
     Dosage: 5 MG, QD IN THE MORNING
     Route: 065
  44. CONCOR [Concomitant]
     Active Substance: BISOPROLOL FUMARATE
     Dosage: 5 MG, QD IN THE MORNING
  45. EUTHYROX [Concomitant]
     Active Substance: LEVOTHYROXINE SODIUM
     Dosage: 125 UG, QD IN THE MORNING
  46. EUTHYROX [Concomitant]
     Active Substance: LEVOTHYROXINE SODIUM
     Dosage: 125 UG, QD IN THE MORNING
  47. UROSIN [Concomitant]
     Active Substance: ALLOPURINOL
     Dosage: 300 MG, QD AT NOONTIME
  48. NOVALGIN [Concomitant]
     Active Substance: METAMIZOLE SODIUM
     Dosage: UNK
     Route: 065
  49. OLEOVIT D3 [Concomitant]
     Active Substance: CHOLECALCIFEROL
     Dosage: 30 DRP, QW ON FRIDAYS
     Route: 065
  50. EPOETIN THETA [Concomitant]
     Active Substance: ERYTHROPOIETIN
     Indication: PRODUCT USED FOR UNKNOWN INDICATION
     Dosage: UNKNOWN
     Route: 065
  51. UROSIN [Concomitant]
     Active Substance: ALLOPURINOL
     Indication: PRODUCT USED FOR UNKNOWN INDICATION
     Dosage: UNKNOWN
     Route: 065
  52. NOVALGIN [Concomitant]
     Active Substance: METAMIZOLE SODIUM
     Indication: PRODUCT USED FOR UNKNOWN INDICATION
     Dosage: UNKNOWN
     Route: 065
  53. OLEOVIT D3 [Concomitant]
     Active Substance: CHOLECALCIFEROL
     Dosage: 30 DRP, QW ON FRIDAYS
  54. LITALIR [Concomitant]
     Active Substance: HYDROXYUREA
     Indication: PRODUCT USED FOR UNKNOWN INDICATION
     Dosage: UNKNOWN
     Route: 065
     Dates: start: 1995
  55. EPOETIN THETA [Concomitant]
     Active Substance: ERYTHROPOIETIN
     Dosage: 1 ML, QW IN THE MORNING
  56. EXFORGE [Concomitant]
     Active Substance: AMLODIPINE BESYLATE\VALSARTAN
     Dosage: 1 DF, QD
     Route: 065
  57. EXFORGE [Concomitant]
     Active Substance: AMLODIPINE BESYLATE\VALSARTAN
     Dosage: 1 DF, QD (5/160 MG)
     Route: 065
  58. CONCOR [Concomitant]
     Active Substance: BISOPROLOL FUMARATE
     Indication: PRODUCT USED FOR UNKNOWN INDICATION
     Dosage: UNKNOWN
     Route: 065
  59. CONCOR [Concomitant]
     Active Substance: BISOPROLOL FUMARATE
     Dosage: 5 MG, QD IN THE MORNING
  60. CONCOR [Concomitant]
     Active Substance: BISOPROLOL FUMARATE
     Dosage: 5 MG, QD IN THE MORNING
  61. EUTHYROX [Concomitant]
     Active Substance: LEVOTHYROXINE SODIUM
     Dosage: 125 UG, QD IN THE MORNING

REACTIONS (14)
  - Flatulence [Recovered/Resolved]
  - Pancytopenia [Recovered/Resolved]
  - Anaemia [Recovered/Resolved]
  - Nasopharyngitis [Recovered/Resolved]
  - Haematoma [Recovered/Resolved]
  - Portal vein thrombosis [Recovered/Resolved]
  - Rhinitis [Unknown]
  - Peripheral swelling [Recovered/Resolved]
  - Haemorrhagic diathesis [Recovered/Resolved]
  - Hyperkalaemia [Recovered/Resolved]
  - Thrombocytopenia [Recovered/Resolved]
  - Influenza [Recovered/Resolved]
  - Leukopenia [Recovered/Resolved]
  - Epistaxis [Recovered/Resolved]

NARRATIVE: CASE EVENT DATE: 20120820
